FAERS Safety Report 19646022 (Version 1)
Quarter: 2021Q3

REPORT INFORMATION
  Report Type: Report from Study
  Country: None (occurrence: US)
  Receive Date: 20210802
  Receipt Date: 20210802
  Transmission Date: 20211014
  Serious: Yes (Other)
  Sender: FDA-Public Use
  Company Number: US-ABBVIE-21K-163-4013862-00

PATIENT
  Age: 55 Year
  Sex: Female

DRUGS (1)
  1. HUMIRA [Suspect]
     Active Substance: ADALIMUMAB
     Indication: PSORIASIS
     Route: 058
     Dates: start: 202107

REACTIONS (6)
  - Femur fracture [Unknown]
  - Post procedural complication [Unknown]
  - Pain [Unknown]
  - Patella fracture [Unknown]
  - Fall [Unknown]
  - Amnesia [Unknown]

NARRATIVE: CASE EVENT DATE: 202107
